FAERS Safety Report 8728666 (Version 2)
Quarter: 2012Q4

REPORT INFORMATION
  Report Type: 
  Country: US (occurrence: US)
  Receive Date: 20120817
  Receipt Date: 20121127
  Transmission Date: 20130627
  Serious: Yes (Hospitalization, Other)
  Sender: FDA-Public Use
  Company Number: PHEH2012US014931

PATIENT
  Age: 78 Year
  Sex: Female
  Weight: 66.21 kg

DRUGS (3)
  1. EXELON PATCH [Suspect]
     Indication: DEMENTIA
     Dosage: 9.5 mg / 24 hs
     Route: 062
     Dates: start: 20120301, end: 20120706
  2. DIOVAN [Concomitant]
     Dosage: 1 DF (80 mg), Daily
     Route: 048
     Dates: start: 2011
  3. ACETYLSALICYLIC ACID ENTERIC COATED [Concomitant]

REACTIONS (7)
  - Gastric haemorrhage [Recovered/Resolved]
  - Haematemesis [Recovered/Resolved]
  - Vomiting [Recovered/Resolved]
  - Gastritis [Unknown]
  - Mucosal erosion [Unknown]
  - Oesophagitis [Unknown]
  - Haemoglobin decreased [Unknown]
